FAERS Safety Report 7974186-6 (Version None)
Quarter: 2011Q4

REPORT INFORMATION
  Report Type: 
  Country: None (occurrence: None)
  Receive Date: 20111213
  Receipt Date: 20111208
  Transmission Date: 20120403
  Serious: Yes (Hospitalization)
  Sender: FDA-Public Use
  Company Number: DE-BAYER-2011-116100

PATIENT
  Age: 42 Year
  Sex: Female

DRUGS (1)
  1. ESTRADIOL VALERATE/DIENOGEST [Suspect]
     Dosage: UNK
     Dates: start: 20110701, end: 20110708

REACTIONS (5)
  - GENERALISED OEDEMA [None]
  - HYPERSENSITIVITY [None]
  - HYPERTENSION [None]
  - PERIORBITAL OEDEMA [None]
  - RASH [None]
